FAERS Safety Report 16109095 (Version 1)
Quarter: 2019Q1

REPORT INFORMATION
  Report Type: Spontaneous
  Country: US (occurrence: US)
  Receive Date: 20190323
  Receipt Date: 20190323
  Transmission Date: 20190418
  Serious: No
  Sender: FDA-Public Use
  Company Number: US-THERAPEUTICSMD-2019TMD00125

PATIENT
  Age: 72 Year
  Sex: Female

DRUGS (1)
  1. IMVEXXY [Suspect]
     Active Substance: ESTRADIOL
     Dosage: UNK, ONCE
     Route: 067
     Dates: start: 20190204, end: 20190204

REACTIONS (5)
  - Urinary tract infection [Unknown]
  - Anxiety [Unknown]
  - Product use complaint [Recovered/Resolved]
  - Blood urine present [Unknown]
  - Blood pressure increased [Unknown]

NARRATIVE: CASE EVENT DATE: 201902
